FAERS Safety Report 7888880-9 (Version None)
Quarter: 2011Q4

REPORT INFORMATION
  Report Type: 
  Country: None (occurrence: None)
  Receive Date: 20111103
  Receipt Date: 20111028
  Transmission Date: 20120403
  Serious: Yes (Hospitalization)
  Sender: FDA-Public Use
  Company Number: US-JNJFOC-20110903234

PATIENT
  Sex: Female
  Weight: 51.71 kg

DRUGS (8)
  1. SIMPONI [Suspect]
     Indication: RHEUMATOID ARTHRITIS
     Route: 058
     Dates: start: 20110629
  2. ZOCOR [Concomitant]
     Indication: LIPIDS INCREASED
     Dates: start: 20050101
  3. CELEXA [Concomitant]
     Indication: DEPRESSION
     Route: 048
  4. SYNTHROID [Concomitant]
     Indication: HYPOTHYROIDISM
  5. ASPIRIN [Concomitant]
     Indication: THROMBOSIS
     Route: 048
  6. TENORMIN [Concomitant]
     Indication: HYPERTENSION
     Dosage: TOTAL DAILY DOSE 25
     Route: 048
  7. CALCIUM CARBONATE [Concomitant]
     Indication: MEDICAL DIET
     Route: 048
  8. ASPIRIN [Concomitant]
     Indication: CORONARY ARTERY DISEASE
     Route: 048

REACTIONS (1)
  - CELLULITIS [None]
